FAERS Safety Report 12997709 (Version 2)
Quarter: 2017Q1

REPORT INFORMATION
  Report Type: Spontaneous
  Country: IT (occurrence: IT)
  Receive Date: 20161205
  Receipt Date: 20170103
  Transmission Date: 20170428
  Serious: Yes (Hospitalization)
  Sender: FDA-Public Use
  Company Number: IT-BAYER-2016-228908

PATIENT
  Age: 87 Year
  Sex: Female

DRUGS (4)
  1. CARDIOASPIRIN 100 MG [Suspect]
     Active Substance: ASPIRIN
     Dosage: 100 MG, QD
     Route: 048
     Dates: start: 20120101, end: 20130720
  2. MIFLONIDE [Concomitant]
     Active Substance: BUDESONIDE
     Route: 055
  3. MICROSER [Concomitant]
     Active Substance: BETAHISTINE HYDROCHLORIDE
  4. OMEPRAZOL [Concomitant]
     Active Substance: OMEPRAZOLE
     Route: 048

REACTIONS (3)
  - Vertigo [Unknown]
  - Cerebral haemorrhage [Unknown]
  - Hypertension [Unknown]

NARRATIVE: CASE EVENT DATE: 20130720
